FAERS Safety Report 15930761 (Version 1)
Quarter: 2019Q1

REPORT INFORMATION
  Report Type: Spontaneous
  Country: US (occurrence: US)
  Receive Date: 20190207
  Receipt Date: 20190207
  Transmission Date: 20190417
  Serious: Yes (Other)
  Sender: FDA-Public Use
  Company Number: US-ACCORD-105236

PATIENT
  Age: 55 Year
  Sex: Female
  Weight: 48.53 kg

DRUGS (1)
  1. OLMESARTAN ACCORD [Suspect]
     Active Substance: OLMESARTAN
     Indication: HYPERTENSION
     Route: 048
     Dates: start: 201809

REACTIONS (3)
  - Abnormal loss of weight [Unknown]
  - Dizziness [Unknown]
  - Coeliac disease [Unknown]

NARRATIVE: CASE EVENT DATE: 201811
